FAERS Safety Report 23325804 (Version 1)
Quarter: 2023Q4

REPORT INFORMATION
  Report Type: Report from Study
  Country: FR (occurrence: FR)
  Receive Date: 20231221
  Receipt Date: 20231221
  Transmission Date: 20240110
  Serious: Yes (Other)
  Sender: FDA-Public Use
  Company Number: FR-PFIZER INC-202300446604

PATIENT
  Age: 100 Month
  Sex: Male

DRUGS (3)
  1. PAMIDRONATE DISODIUM [Suspect]
     Active Substance: PAMIDRONATE DISODIUM
     Indication: Fracture
     Dosage: 0.7 MG/KG, 1X/DAY,  3 DAYS EVERY 3 MONTHS
  2. ZOLEDRONIC ACID [Suspect]
     Active Substance: ZOLEDRONIC ACID
     Indication: Fracture
     Dosage: 0.05 MG/KG, 3 MONTHS
  3. INTERFERON ALFA NOS [Suspect]
     Active Substance: INTERFERON ALFA-2A OR INTERFERON ALFA-2B
     Indication: Fracture
     Dosage: UNK

REACTIONS (2)
  - Drug ineffective [Unknown]
  - Fracture [Unknown]
